FAERS Safety Report 24064377 (Version 1)
Quarter: 2024Q3

REPORT INFORMATION
  Report Type: Spontaneous
  Country: US (occurrence: US)
  Receive Date: 20240709
  Receipt Date: 20240709
  Transmission Date: 20241016
  Serious: No
  Sender: SANOFI AVENTIS
  Company Number: US-SA-SAC20240703000104

PATIENT
  Sex: Male
  Weight: 81.646 kg

DRUGS (8)
  1. DUPIXENT [Suspect]
     Active Substance: DUPILUMAB
     Indication: Illness
     Dosage: 300 MG, QOW
     Route: 058
  2. RINVOQ [Concomitant]
     Active Substance: UPADACITINIB
  3. CLOBETASOL PROPIONATE [Concomitant]
     Active Substance: CLOBETASOL PROPIONATE
  4. METOPROLOL SUCCINATE [Concomitant]
     Active Substance: METOPROLOL SUCCINATE
  5. HYDROCHLOROTHIAZIDE\LOSARTAN [Concomitant]
     Active Substance: HYDROCHLOROTHIAZIDE\LOSARTAN
  6. FENOFIBRATE [Concomitant]
     Active Substance: FENOFIBRATE
  7. SIMVASTATIN [Concomitant]
     Active Substance: SIMVASTATIN
     Route: 048
  8. QUININE SULFATE [Concomitant]
     Active Substance: QUININE SULFATE

REACTIONS (1)
  - Drug ineffective [Unknown]
